FAERS Safety Report 5715535-9 (Version None)
Quarter: 2008Q2

REPORT INFORMATION
  Report Type: 
  Country: None (occurrence: None)
  Receive Date: 20080422
  Receipt Date: 20080411
  Transmission Date: 20081010
  Serious: Yes (Hospitalization)
  Sender: FDA-Public Use
  Company Number: 2007BI027338

PATIENT
  Age: 62 Year
  Sex: Female

DRUGS (7)
  1. AVONEX [Suspect]
     Indication: MULTIPLE SCLEROSIS
     Dosage: 30 UG;QW;IM
     Route: 030
     Dates: start: 19960801, end: 20071226
  2. CLONIDINE HCL [Concomitant]
  3. LISINOPRIL [Concomitant]
  4. METOPROLOL TARTRATE [Concomitant]
  5. SERTRALINE [Concomitant]
  6. FOSAMAX [Concomitant]
  7. RAZADYNE [Concomitant]

REACTIONS (6)
  - AUTOIMMUNE HEPATITIS [None]
  - DEMENTIA [None]
  - DIABETES MELLITUS [None]
  - HERPES ZOSTER [None]
  - HYPERTENSION [None]
  - PYREXIA [None]
